FAERS Safety Report 5206739-2 (Version None)
Quarter: 2007Q1

REPORT INFORMATION
  Report Type: 
  Country: None (occurrence: None)
  Receive Date: 20070109
  Receipt Date: 20061218
  Transmission Date: 20070707
  Serious: Yes (Hospitalization)
  Sender: FDA-Public Use
  Company Number: 6028316

PATIENT
  Age: 75 Year
  Sex: Female

DRUGS (6)
  1. DETENSIEL (10 MG, TABLET) (BISOPROLOL FUMARATE) [Suspect]
     Indication: DRUG USE FOR UNKNOWN INDICATION
     Dosage: ORAL
     Route: 048
  2. SPIRONOLACTONE [Suspect]
     Indication: DRUG USE FOR UNKNOWN INDICATION
     Dosage: 75 MG (75 MG, 1 D) ORAL
     Route: 048
     Dates: end: 20061110
  3. STILNOX (TABLET) (ZOLPIDEM) [Suspect]
     Indication: DRUG USE FOR UNKNOWN INDICATION
     Dosage: ORAL
     Route: 048
     Dates: end: 20061110
  4. LASIX [Suspect]
     Indication: DRUG USE FOR UNKNOWN INDICATION
     Dosage: 1 DOSAGE FORMS (1 DOSAGE FORMS, 1 IN 1 D) ORAL
     Route: 048
     Dates: end: 20061110
  5. LEXOMIL ROCHE (6 MG, TABLET) (BROMAZEPAM) [Suspect]
     Indication: DRUG USE FOR UNKNOWN INDICATION
     Dosage: 12 MG (12 MG, 1 D) ORAL
     Route: 048
  6. TERCIAN (40 MILLIGRAM/MILLILITERS, ORAL DROPS, SOLUTION) (CYAMEMAZINE) [Suspect]
     Indication: DRUG USE FOR UNKNOWN INDICATION
     Dosage: 1 DOSAGE FORMS (1 DOSAGE FORMS, 1 IN 1 D) ORAL
     Route: 048
     Dates: end: 20061110

REACTIONS (5)
  - CRYOGLOBULINURIA [None]
  - ECCHYMOSIS [None]
  - EXTRAPYRAMIDAL DISORDER [None]
  - FALL [None]
  - RENAL FAILURE [None]
